FAERS Safety Report 6387468-9 (Version None)
Quarter: 2009Q4

REPORT INFORMATION
  Report Type: 
  Country: None (occurrence: None)
  Receive Date: 20091005
  Receipt Date: 20091002
  Transmission Date: 20100525
  Serious: Yes (Hospitalization)
  Sender: FDA-Public Use
  Company Number: DE-BIOGENIDEC-2009BI031088

PATIENT
  Age: 34 Year
  Sex: Female
  Weight: 77 kg

DRUGS (6)
  1. TYSABRI [Suspect]
     Indication: RELAPSING-REMITTING MULTIPLE SCLEROSIS
     Route: 042
     Dates: start: 20060905, end: 20090901
  2. NOVALGIN [Concomitant]
     Indication: RELAPSING-REMITTING MULTIPLE SCLEROSIS
     Route: 048
  3. IBUPROFEN [Concomitant]
     Indication: RELAPSING-REMITTING MULTIPLE SCLEROSIS
     Route: 048
  4. IBUPROFEN [Concomitant]
     Indication: TRIGEMINAL NEURALGIA
     Route: 048
  5. IBUPROFEN [Concomitant]
     Route: 048
     Dates: start: 20090401, end: 20090501
  6. IBUPROFEN [Concomitant]
     Route: 048
     Dates: start: 20090401, end: 20090501

REACTIONS (4)
  - INFECTION [None]
  - MULTIPLE SCLEROSIS RELAPSE [None]
  - MYELOFIBROSIS [None]
  - TRIGEMINAL NEURALGIA [None]
